FAERS Safety Report 11879331 (Version 2)
Quarter: 2016Q1

REPORT INFORMATION
  Report Type: Report from Study
  Country: IT (occurrence: IT)
  Receive Date: 20151230
  Receipt Date: 20160113
  Transmission Date: 20160526
  Serious: Yes (Other)
  Sender: FDA-Public Use
  Company Number: IT-009507513-1512ITA007970

PATIENT
  Age: 63 Year
  Sex: Male

DRUGS (3)
  1. BOCEPREVIR [Suspect]
     Active Substance: BOCEPREVIR
     Indication: HEPATITIS C
     Dosage: UNK
     Route: 048
     Dates: start: 20141003, end: 20150107
  2. PEGINTERFERON ALFA-2B [Suspect]
     Active Substance: PEGINTERFERON ALFA-2B
     Indication: HEPATITIS C
     Dosage: UNK
     Route: 058
     Dates: start: 20141003, end: 20150107
  3. RIBAVIRIN. [Suspect]
     Active Substance: RIBAVIRIN
     Indication: HEPATITIS C
     Dosage: 1200 (UNITS NOT REPORTED), ONCE A DAY
     Route: 048
     Dates: start: 20141003, end: 20150107

REACTIONS (5)
  - Urinary tract infection [Unknown]
  - Pneumonia [Unknown]
  - Pneumonitis [Unknown]
  - Inappropriate schedule of drug administration [Unknown]
  - Pruritus [Unknown]

NARRATIVE: CASE EVENT DATE: 20150107
